FAERS Safety Report 9114948 (Version 1)
Quarter: 2013Q1

REPORT INFORMATION
  Report Type: Spontaneous
  Country: AU (occurrence: AU)
  Receive Date: 20130128
  Receipt Date: 20130128
  Transmission Date: 20140127
  Serious: Yes (Hospitalization)
  Sender: FDA-Public Use
  Company Number: AU-ASTRAZENECA-2013SE04741

PATIENT
  Sex: Male

DRUGS (2)
  1. PRADAXA [Suspect]
     Route: 065
  2. CRESTOR [Suspect]
     Route: 048
     Dates: start: 2007

REACTIONS (4)
  - Dysphagia [Unknown]
  - Malaise [Unknown]
  - Nodule [Unknown]
  - Myopathy [Unknown]
